FAERS Safety Report 20307097 (Version 1)
Quarter: 2022Q1

REPORT INFORMATION
  Report Type: Report from Study
  Country: US (occurrence: US)
  Receive Date: 20220107
  Receipt Date: 20220107
  Transmission Date: 20220423
  Serious: Yes (Death)
  Sender: FDA-Public Use
  Company Number: US-ABBVIE-22K-163-4222101-00

PATIENT
  Age: 59 Year
  Sex: Male

DRUGS (3)
  1. VENCLEXTA [Suspect]
     Active Substance: VENETOCLAX
     Indication: Chronic lymphocytic leukaemia
     Dosage: 10, 5 WK RAMP UP: 2-10 MG TABS WK 1 1-50 MG TAB PO WK 2 1-100 MG TAB WK 3
     Route: 048
  2. RITUXAN [Suspect]
     Active Substance: RITUXIMAB
     Indication: Neoplasm malignant
     Route: 017
  3. RITUXAN [Suspect]
     Active Substance: RITUXIMAB
     Route: 017

REACTIONS (1)
  - Death [Fatal]

NARRATIVE: CASE EVENT DATE: 20211010
